FAERS Safety Report 7277181-8 (Version None)
Quarter: 2011Q1

REPORT INFORMATION
  Report Type: 
  Country: None (occurrence: None)
  Receive Date: 20110202
  Receipt Date: 20110202
  Transmission Date: 20110831
  Serious: Yes (Other)
  Sender: FDA-Public Use
  Company Number: None

PATIENT
  Age: 56 Year
  Sex: Female
  Weight: 72.5755 kg

DRUGS (7)
  1. CHROMIUM CHLORIDE [Concomitant]
  2. SIMVASTATIN [Suspect]
     Indication: BLOOD CHOLESTEROL INCREASED
     Dosage: 40 MG 1 PER DAY PO
     Route: 048
     Dates: start: 20101208, end: 20101226
  3. FISH OIL CAPSULES [Concomitant]
  4. AMITRIPTYLINE [Concomitant]
  5. VITAMIN D [Concomitant]
  6. ALPHA LIPOIC ACID [Concomitant]
  7. CENTRUM SILVER-1 MULTIVITAMIN TABLET [Concomitant]

REACTIONS (4)
  - MYALGIA [None]
  - PAIN IN EXTREMITY [None]
  - NEURALGIA [None]
  - ARTHRALGIA [None]
